FAERS Safety Report 10736726 (Version 1)
Quarter: 2015Q1

REPORT INFORMATION
  Report Type: Spontaneous
  Country: CN (occurrence: None)
  Receive Date: 20150122
  Receipt Date: 20150122
  Transmission Date: 20150721
  Serious: Yes (Hospitalization)
  Sender: FDA-Public Use
  Company Number: CN-2015VAL000050

PATIENT
  Age: 15 Year
  Sex: Male
  Weight: 61 kg

DRUGS (1)
  1. LOTENSIN [Suspect]
     Active Substance: BENAZEPRIL HYDROCHLORIDE
     Indication: HYPERTENSION
     Route: 048
     Dates: start: 20140521, end: 20140530

REACTIONS (2)
  - Hepatocellular injury [None]
  - Alanine aminotransferase increased [None]

NARRATIVE: CASE EVENT DATE: 20140530
